FAERS Safety Report 8106555-8 (Version None)
Quarter: 2012Q1

REPORT INFORMATION
  Report Type: 
  Country: None (occurrence: None)
  Receive Date: 20120202
  Receipt Date: 20120120
  Transmission Date: 20120608
  Serious: Yes (Other)
  Sender: FDA-Public Use
  Company Number: US-BAYER-2011-045532

PATIENT
  Age: 24 Year
  Sex: Female
  Weight: 63.492 kg

DRUGS (19)
  1. XANAX [Concomitant]
     Indication: ANXIETY
     Dosage: UNK
     Dates: start: 20080101
  2. MELOXICAM [Concomitant]
     Dosage: 7.5 MG, QD
     Dates: start: 20090708
  3. PROMETHAZINE [Concomitant]
     Indication: VOMITING
     Dosage: 1 DF, TID
     Dates: start: 20090722
  4. ALBUTEROL [Concomitant]
     Dosage: UNK
     Dates: start: 20080101
  5. LAMICTAL [Concomitant]
     Indication: BIPOLAR DISORDER
     Dosage: 150 MG, BID
     Dates: start: 20070101, end: 20100101
  6. PREDNISONE TAB [Concomitant]
     Dosage: 40 MG, QD
     Dates: start: 20090721
  7. ZOLPIDEM [Concomitant]
     Dosage: 10 MG, HS
     Dates: start: 20090715
  8. GEODON [Concomitant]
     Indication: BIPOLAR DISORDER
     Dosage: 120 MG, QD
     Dates: start: 20070101, end: 20100101
  9. HYDROCODONE BITARTRATE [Concomitant]
     Indication: PAIN
     Dosage: 1 DF, QID
     Dates: start: 20090729
  10. YAZ [Suspect]
     Indication: PREMENSTRUAL SYNDROME
     Dosage: UNK
     Dates: start: 20050701, end: 20050901
  11. HYDROXYZINE HCL [Concomitant]
     Dosage: 25 MG, HS
     Dates: start: 20090422, end: 20090805
  12. PREDNISONE TAB [Concomitant]
     Dosage: 40 MG, QD
     Dates: start: 20090702
  13. FLOVENT [Concomitant]
     Dosage: UNK
     Dates: start: 20090724
  14. CHANTIX [Concomitant]
     Dosage: UNK UNK, PRN
  15. YAZ [Suspect]
     Dosage: UNK
     Dates: start: 20070101
  16. METHOCARBAMOL [Concomitant]
     Indication: MUSCLE SPASMS
     Dosage: 500 MG, UNK
     Dates: start: 20090708
  17. YAZ [Suspect]
     Dosage: UNK
     Dates: start: 20071201, end: 20090801
  18. ADDERALL 5 [Concomitant]
     Indication: ATTENTION DEFICIT/HYPERACTIVITY DISORDER
     Dosage: UNK
     Dates: start: 20020101
  19. AMPHETAMINE SULFATE [Concomitant]
     Dosage: UNK
     Dates: start: 20090615

REACTIONS (7)
  - INJURY [None]
  - FEAR [None]
  - THROMBOPHLEBITIS SUPERFICIAL [None]
  - BIPOLAR DISORDER [None]
  - PAIN [None]
  - ATTENTION DEFICIT/HYPERACTIVITY DISORDER [None]
  - THROMBOSIS [None]
